FAERS Safety Report 9601801 (Version 1)
Quarter: 2013Q4

REPORT INFORMATION
  Report Type: Spontaneous
  Country: IT (occurrence: None)
  Receive Date: 20131002
  Receipt Date: 20131002
  Transmission Date: 20140711
  Serious: Yes (Hospitalization)
  Sender: FDA-Public Use
  Company Number: AUR-APL-2013-08015

PATIENT
  Age: 27 Year
  Sex: Female

DRUGS (1)
  1. PAROXETINE (PAROXETINE) [Suspect]
     Indication: DEPRESSION
     Route: 048
     Dates: start: 20130929, end: 20130929

REACTIONS (2)
  - Headache [None]
  - Self injurious behaviour [None]
